FAERS Safety Report 6162945-4 (Version None)
Quarter: 2009Q2

REPORT INFORMATION
  Report Type: 
  Country: None (occurrence: None)
  Receive Date: 20090420
  Receipt Date: 20090407
  Transmission Date: 20091009
  Serious: Yes (Hospitalization)
  Sender: FDA-Public Use
  Company Number: 2009AP000597

PATIENT
  Age: 50 Year
  Sex: Female

DRUGS (6)
  1. PRAVASTATIN SODIUM [Suspect]
     Indication: HYPERLIPIDAEMIA
     Dosage: 20 MG;QD;PO
     Route: 048
     Dates: start: 20081223, end: 20090126
  2. OMEPRAZOLE [Concomitant]
  3. LISINOPRIL [Concomitant]
  4. PANTOPRAZOLE SODIUM [Concomitant]
  5. ESCITALOPRAM [Concomitant]
  6. ASPIRIN [Concomitant]

REACTIONS (5)
  - BLOOD CHOLESTEROL INCREASED [None]
  - CHEST PAIN [None]
  - HYPOAESTHESIA [None]
  - MYALGIA [None]
  - PAIN IN EXTREMITY [None]
